FAERS Safety Report 21904347 (Version 1)
Quarter: 2023Q1

REPORT INFORMATION
  Report Type: Spontaneous
  Country: US (occurrence: None)
  Receive Date: 20230124
  Receipt Date: 20230124
  Transmission Date: 20230418
  Serious: Yes (Hospitalization)
  Sender: FDA-Public Use
  Company Number: None

PATIENT
  Age: 66 Year
  Sex: Male
  Weight: 74 kg

DRUGS (1)
  1. EMPAGLIFLOZIN [Suspect]
     Active Substance: EMPAGLIFLOZIN
     Indication: Diabetes mellitus
     Dosage: 12.5 MG EVERY DAY PO
     Route: 048
     Dates: start: 20220816, end: 20221208

REACTIONS (8)
  - Fall [None]
  - Malaise [None]
  - Anion gap increased [None]
  - Blood glucose increased [None]
  - White blood cell count increased [None]
  - Cellulitis [None]
  - Euglycaemic diabetic ketoacidosis [None]
  - Fatigue [None]

NARRATIVE: CASE EVENT DATE: 20221208
